FAERS Safety Report 9973004 (Version 1)
Quarter: 2014Q1

REPORT INFORMATION
  Report Type: Spontaneous
  Country: US (occurrence: US)
  Receive Date: 20140306
  Receipt Date: 20140306
  Transmission Date: 20141002
  Serious: No
  Sender: FDA-Public Use
  Company Number: US-PFIZER INC-2014062223

PATIENT
  Sex: Male

DRUGS (2)
  1. ADVIL [Suspect]
     Indication: MUSCULOSKELETAL PAIN
     Dosage: 600 MG (THREE CAPLETS OF 200 MG), 3X/DAY
     Route: 048
     Dates: start: 20140301
  2. ADVIL [Suspect]
     Indication: INFLAMMATION

REACTIONS (2)
  - Overdose [Unknown]
  - Pain in extremity [Unknown]
